FAERS Safety Report 6717670-5 (Version None)
Quarter: 2010Q2

REPORT INFORMATION
  Report Type: 
  Country: None (occurrence: None)
  Receive Date: 20100507
  Receipt Date: 20100507
  Transmission Date: 20101027
  Serious: Yes (Other)
  Sender: FDA-Public Use
  Company Number: None

PATIENT
  Age: 70 Year
  Sex: Female
  Weight: 54.4316 kg

DRUGS (2)
  1. METOPROLOL TARTRATE [Suspect]
     Indication: CARDIOVASCULAR DISORDER
     Dosage: 25 MG 1/2 TABLET BID
     Dates: start: 20100330, end: 20100503
  2. ATENOLOL [Suspect]

REACTIONS (2)
  - ASTHENIA [None]
  - FATIGUE [None]
